FAERS Safety Report 7555611-1 (Version None)
Quarter: 2011Q2

REPORT INFORMATION
  Report Type: 
  Country: None (occurrence: None)
  Receive Date: 20110617
  Receipt Date: 20011005
  Transmission Date: 20111010
  Serious: Yes (Death)
  Sender: FDA-Public Use
  Company Number: PHBS2001JP08988

PATIENT
  Sex: Male

DRUGS (6)
  1. SANDOSTATIN [Suspect]
     Dosage: 300 UG/DAY
     Route: 058
     Dates: start: 19980331, end: 19980409
  2. SANDOSTATIN [Suspect]
     Dosage: 400 UG/DAY
     Route: 058
     Dates: start: 19980410, end: 19980415
  3. MORPHINE HCL ELIXIR [Concomitant]
     Dosage: 20 MG/DAY
     Route: 058
     Dates: start: 19980310, end: 19980416
  4. DECADRON [Concomitant]
     Dosage: 4 MG/DAY
     Dates: start: 19980320, end: 19980416
  5. HALOPERIDOL [Concomitant]
     Dosage: 1 ML/DAY
     Dates: start: 19980323, end: 19980414
  6. PRIMPERAN TAB [Concomitant]
     Dosage: 2 DF/DAY
     Dates: start: 19980311, end: 19980416

REACTIONS (3)
  - CONDITION AGGRAVATED [None]
  - ANAEMIA [None]
  - DEPRESSED LEVEL OF CONSCIOUSNESS [None]
